FAERS Safety Report 7582428-4 (Version None)
Quarter: 2011Q2

REPORT INFORMATION
  Report Type: 
  Country: None (occurrence: None)
  Receive Date: 20110630
  Receipt Date: 20110621
  Transmission Date: 20111010
  Serious: Yes (Other)
  Sender: FDA-Public Use
  Company Number: US-JNJFOC-20110610109

PATIENT
  Sex: Female

DRUGS (2)
  1. RISPERIDONE [Suspect]
     Indication: BIPOLAR DISORDER
     Route: 048
     Dates: start: 20090101
  2. SERTRALINE [Concomitant]
     Indication: DEPRESSION
     Dosage: 100 MG ONCE DAILY
     Route: 048
     Dates: start: 20090101

REACTIONS (7)
  - DEPRESSION [None]
  - GALACTORRHOEA [None]
  - DRUG EXPOSURE DURING PREGNANCY [None]
  - PREMATURE LABOUR [None]
  - VISION BLURRED [None]
  - AMENORRHOEA [None]
  - PRODUCT ODOUR ABNORMAL [None]
